FAERS Safety Report 17756611 (Version 1)
Quarter: 2020Q2

REPORT INFORMATION
  Report Type: Report from Study
  Country: CN (occurrence: CN)
  Receive Date: 20200507
  Receipt Date: 20200507
  Transmission Date: 20200714
  Serious: Yes (Other)
  Sender: FDA-Public Use
  Company Number: CN-ROCHE-2593487

PATIENT
  Sex: Female

DRUGS (2)
  1. VINORELBINE [Suspect]
     Active Substance: VINORELBINE TARTRATE
     Indication: CERVIX CANCER METASTATIC
     Dosage: ON DAY 1 AND DAY 8
     Route: 041
  2. BEVACIZUMAB. [Suspect]
     Active Substance: BEVACIZUMAB
     Indication: CERVIX CANCER METASTATIC
     Dosage: ON DAY 1
     Route: 041

REACTIONS (20)
  - Off label use [Unknown]
  - Blood alkaline phosphatase abnormal [Unknown]
  - Thrombosis [Unknown]
  - Skin lesion [Unknown]
  - Leukopenia [Unknown]
  - Nausea [Unknown]
  - Aspartate aminotransferase abnormal [Unknown]
  - Cardiovascular disorder [Unknown]
  - Intentional product use issue [Unknown]
  - Gastrointestinal disorder [Unknown]
  - Pain [Unknown]
  - Neutropenia [Unknown]
  - Peripheral sensory neuropathy [Unknown]
  - Embolism [Unknown]
  - Hypersensitivity [Unknown]
  - Thrombocytopenia [Unknown]
  - Anaemia [Unknown]
  - Hypertension [Unknown]
  - Vomiting [Unknown]
  - Haemorrhage [Unknown]
